FAERS Safety Report 22278341 (Version 1)
Quarter: 2023Q2

REPORT INFORMATION
  Report Type: Spontaneous
  Country: MX (occurrence: MX)
  Receive Date: 20230503
  Receipt Date: 20230503
  Transmission Date: 20230722
  Serious: Yes (Death)
  Sender: FDA-Public Use
  Company Number: MX-COFEPRIS-300222479

PATIENT
  Age: 15 Year

DRUGS (3)
  1. METHOTREXATE [Suspect]
     Active Substance: METHOTREXATE
     Indication: Acute lymphocytic leukaemia
     Dosage: 500MG/5ML
     Route: 037
  2. CYTARABINE [Suspect]
     Active Substance: CYTARABINE
     Indication: Acute lymphocytic leukaemia
     Route: 037
  3. HYDROCORTISONE [Suspect]
     Active Substance: HYDROCORTISONE
     Indication: Acute lymphocytic leukaemia
     Route: 037

REACTIONS (7)
  - Irritability [Unknown]
  - Priapism [Unknown]
  - Pain [Unknown]
  - Liver injury [Fatal]
  - Haematotoxicity [Fatal]
  - Renal impairment [Fatal]
  - Incorrect route of product administration [Unknown]
